FAERS Safety Report 7793062-5 (Version None)
Quarter: 2011Q3

REPORT INFORMATION
  Report Type: 
  Country: None (occurrence: None)
  Receive Date: 20110929
  Receipt Date: 20110916
  Transmission Date: 20111222
  Serious: Yes (Hospitalization)
  Sender: FDA-Public Use
  Company Number: 2011AP002102

PATIENT
  Age: 18 Year
  Sex: Female

DRUGS (5)
  1. TACROLIMUS [Concomitant]
  2. CYCLOSPORINE [Suspect]
     Indication: IMMUNOSUPPRESSION
  3. CYCLOSPORINE [Suspect]
     Indication: LIVER TRANSPLANT
  4. MYCOPHENOLATE MOFETIL [Suspect]
     Indication: IMMUNOSUPPRESSION
  5. CORTICOSTEROID NOS [Suspect]
     Indication: IMMUNOSUPPRESSION

REACTIONS (8)
  - LIVER TRANSPLANT REJECTION [None]
  - TREATMENT NONCOMPLIANCE [None]
  - LIVER FUNCTION TEST ABNORMAL [None]
  - ANTIBODY TEST POSITIVE [None]
  - ASPARTATE AMINOTRANSFERASE INCREASED [None]
  - BLOOD BILIRUBIN INCREASED [None]
  - BLOOD ALKALINE PHOSPHATASE INCREASED [None]
  - HEPATIC INFARCTION [None]
